FAERS Safety Report 4501941-7 (Version None)
Quarter: 2004Q4

REPORT INFORMATION
  Report Type: 
  Country: None (occurrence: None)
  Receive Date: 20041109
  Receipt Date: 20041028
  Transmission Date: 20050328
  Serious: Yes (Other)
  Sender: FDA-Public Use
  Company Number: 2004242808GB

PATIENT
  Age: 55 Year
  Sex: Female

DRUGS (6)
  1. PROVERA [Suspect]
     Indication: MENORRHAGIA
     Dosage: 100 MG, QD 1ST ADMINISTRATION
     Dates: start: 20040201, end: 20040201
  2. SIMVASTATIN [Concomitant]
  3. FRUSEMIDE [Concomitant]
  4. VITAMIN B NOS (VITAMIN B NOS) [Concomitant]
  5. FLUOXETINE [Concomitant]
  6. ZOTON [Concomitant]

REACTIONS (6)
  - CARDIAC DISORDER [None]
  - DIABETES MELLITUS [None]
  - ELECTROCARDIOGRAM ABNORMAL [None]
  - HAEMORRHAGE [None]
  - MYOCARDIAL INFARCTION [None]
  - POST PROCEDURAL COMPLICATION [None]
